FAERS Safety Report 5255809-1 (Version None)
Quarter: 2007Q1

REPORT INFORMATION
  Report Type: 
  Country: None (occurrence: None)
  Receive Date: 20070301
  Receipt Date: 20070214
  Transmission Date: 20070707
  Serious: Yes (Hospitalization)
  Sender: FDA-Public Use
  Company Number: 8022156

PATIENT
  Age: 66 Year
  Sex: Female

DRUGS (11)
  1. KEPPRA [Suspect]
     Indication: EPILEPSY
     Dosage: 500 MG 3/D
     Dates: start: 20070114
  2. UNACID [Concomitant]
  3. TRILEPTAL [Concomitant]
  4. RAMIPRIL [Concomitant]
  5. AMLODIPINE [Concomitant]
  6. PANTOZOL [Concomitant]
  7. BELOC [Concomitant]
  8. BEKAWAN [Concomitant]
  9. BERODUAL [Concomitant]
  10. PRAVASTATIN [Concomitant]
  11. MARCUMAR [Concomitant]

REACTIONS (2)
  - PHOTOSENSITIVITY REACTION [None]
  - RASH [None]
